FAERS Safety Report 9450320 (Version 2)
Quarter: 2013Q4

REPORT INFORMATION
  Report Type: Spontaneous
  Country: GB (occurrence: None)
  Receive Date: 20130807
  Receipt Date: 20131205
  Transmission Date: 20140711
  Serious: Yes (Other)
  Sender: FDA-Public Use
  Company Number: AUR-APL-2013-06317

PATIENT
  Age: 58 Year
  Sex: Female

DRUGS (4)
  1. NAPROXEN (NAPROXEN) [Suspect]
     Indication: PRODUCT USED FOR UNKNOWN INDICATION
     Dosage: 500 MG 2 IN 1 D
     Route: 048
  2. ROACTEMRA [Suspect]
     Indication: RHEUMATOID ARTHRITIS
     Dosage: 0.6667 DOSAGE FORMS (20 DOSAGE FORMS, 1 IN 1 M), INTRAVENOUS
     Route: 042
  3. CO-AMOXICLAV (AMOXCILLIN W/ CLAVULANTE) [Concomitant]
  4. METHOTREXATE (METHOTREXATE) [Concomitant]

REACTIONS (3)
  - Breast pain [None]
  - Headache [None]
  - Lymphadenopathy [None]
